FAERS Safety Report 23569191 (Version 2)
Quarter: 2024Q1

REPORT INFORMATION
  Report Type: Spontaneous
  Country: US (occurrence: US)
  Receive Date: 20240227
  Receipt Date: 20240313
  Transmission Date: 20240410
  Serious: Yes (Other)
  Sender: FDA-Public Use
  Company Number: US-AMGEN-KDL152850

PATIENT
  Age: 75 Year
  Sex: Female

DRUGS (1)
  1. EPOETIN ALFA [Suspect]
     Active Substance: ERYTHROPOIETIN
     Indication: Pre-existing disease
     Dosage: UNK
     Route: 042

REACTIONS (4)
  - Erythema [Recovered/Resolved]
  - Exfoliative rash [Recovered/Resolved]
  - Hypersensitivity [Recovered/Resolved]
  - Product administration error [Recovered/Resolved]

NARRATIVE: CASE EVENT DATE: 20051001
